FAERS Safety Report 8573876-4 (Version None)
Quarter: 2012Q3

REPORT INFORMATION
  Report Type: 
  Country: None (occurrence: None)
  Receive Date: 20120806
  Receipt Date: 20120301
  Transmission Date: 20120928
  Serious: No
  Sender: FDA-Public Use
  Company Number: US-GLAXOSMITHKLINE-A0968225A

PATIENT
  Age: 65 Year
  Sex: Male

DRUGS (4)
  1. SPIRIVA [Suspect]
     Dosage: 1PUFF TWICE PER DAY
     Dates: start: 20090101
  2. POTASSIUM CHLORIDE [Concomitant]
  3. LOSARTAN POTASSIUM [Concomitant]
  4. FLUTICASONE PROPIONATE [Suspect]
     Indication: DYSPNOEA
     Dosage: 2PUFF PER DAY
     Route: 055
     Dates: start: 20090101

REACTIONS (1)
  - DYSPNOEA EXERTIONAL [None]
